FAERS Safety Report 4920330-4 (Version None)
Quarter: 2006Q1

REPORT INFORMATION
  Report Type: 
  Country: None (occurrence: None)
  Receive Date: 20060223
  Receipt Date: 20050607
  Transmission Date: 20060701
  Serious: Yes (Hospitalization)
  Sender: FDA-Public Use
  Company Number: US-MERCK-0506USA01114

PATIENT
  Age: 52 Year
  Sex: Female

DRUGS (3)
  1. VIOXX [Suspect]
     Indication: EXOSTOSIS
     Route: 048
     Dates: start: 20010101
  2. PREMARIN [Concomitant]
     Route: 065
  3. VICODIN [Concomitant]
     Route: 065

REACTIONS (8)
  - ANAEMIA [None]
  - ANGINA PECTORIS [None]
  - ARTERIOSCLEROSIS CORONARY ARTERY [None]
  - CHOLELITHIASIS [None]
  - CORONARY ARTERY STENOSIS [None]
  - GASTROOESOPHAGEAL REFLUX DISEASE [None]
  - LEUKOCYTOSIS [None]
  - URINARY TRACT INFECTION [None]
